FAERS Safety Report 8488103-6 (Version None)
Quarter: 2012Q3

REPORT INFORMATION
  Report Type: 
  Country: None (occurrence: None)
  Receive Date: 20120705
  Receipt Date: 20120621
  Transmission Date: 20120928
  Serious: Yes (Hospitalization)
  Sender: FDA-Public Use
  Company Number: KR-UCBSA-055230

PATIENT
  Age: 65 Year
  Sex: Female
  Weight: 55.5 kg

DRUGS (97)
  1. TRANEXAMIC ACID [Concomitant]
     Indication: PROPHYLAXIS
     Route: 042
     Dates: start: 20120411, end: 20120413
  2. TRANEXAMIC ACID [Concomitant]
     Route: 042
     Dates: start: 20120416, end: 20120417
  3. N/S [Concomitant]
     Indication: DEHYDRATION
     Dosage: BG
     Route: 042
     Dates: start: 20120411, end: 20120413
  4. N/S [Concomitant]
     Indication: FLUID REPLACEMENT
     Dosage: BG
     Route: 042
     Dates: start: 20120411, end: 20120413
  5. N/S [Concomitant]
     Dosage: BG
     Route: 042
     Dates: start: 20120428, end: 20120428
  6. N/S [Concomitant]
     Route: 042
     Dates: start: 20120511, end: 20120512
  7. MULTI-VITAMIN [Concomitant]
     Route: 042
     Dates: start: 20120416, end: 20120416
  8. MEPERIDINE HCL [Concomitant]
     Indication: SEDATION
     Route: 030
     Dates: start: 20120416, end: 20120416
  9. DEXAMETHASONE SODIUM PHOSPHATE [Concomitant]
     Route: 042
     Dates: start: 20120522, end: 20120524
  10. RANITIDINE HCL [Concomitant]
     Route: 042
     Dates: start: 20120522, end: 20120524
  11. D/W [Concomitant]
     Dosage: 5 %
     Route: 042
     Dates: start: 20120522, end: 20120522
  12. BENZYDAMINE [Concomitant]
     Route: 048
     Dates: start: 20120521, end: 20120521
  13. CIMZIA [Suspect]
     Indication: RHEUMATOID ARTHRITIS
     Route: 058
     Dates: start: 20100707, end: 20120410
  14. N/S [Concomitant]
     Dosage: BG
     Route: 042
     Dates: start: 20120428, end: 20120428
  15. N/S [Concomitant]
     Route: 042
     Dates: start: 20120427, end: 20120427
  16. N/S [Concomitant]
     Route: 042
     Dates: start: 20120522, end: 20120524
  17. MULTI-VITAMIN [Concomitant]
     Dosage: 5 CC
     Route: 042
     Dates: start: 20120510, end: 20120510
  18. D/S [Concomitant]
     Indication: DEHYDRATION
     Dosage: 5 %
     Route: 042
     Dates: start: 20120411, end: 20120416
  19. CODEINE PHOSPHATE [Concomitant]
     Route: 048
     Dates: start: 20120525, end: 20120529
  20. VITIS VINIFERA EXTRACT [Concomitant]
     Route: 048
     Dates: start: 20120510, end: 20120517
  21. NYSTATINE GARGLE [Concomitant]
     Dosage: ROUTE: THR
     Dates: start: 20120521, end: 20120521
  22. METHOTREXATE [Concomitant]
     Indication: RHEUMATOID ARTHRITIS
     Route: 048
     Dates: start: 20120430, end: 20120430
  23. N/S [Concomitant]
     Dosage: BG
     Route: 042
     Dates: start: 20120416, end: 20120417
  24. N/S [Concomitant]
     Dosage: BG
     Route: 042
     Dates: start: 20120421, end: 20120421
  25. N/S [Concomitant]
     Dosage: BG
     Route: 042
     Dates: start: 20120425, end: 20120425
  26. N/S [Concomitant]
     Dosage: BG
     Route: 042
     Dates: start: 20120427, end: 20120427
  27. N/S [Concomitant]
     Route: 042
     Dates: start: 20120427, end: 20120427
  28. N/S [Concomitant]
     Route: 042
     Dates: start: 20120522, end: 20120524
  29. MULTI-VITAMIN [Concomitant]
     Indication: VITAMIN SUPPLEMENTATION
     Dosage: 5 CC
     Route: 042
     Dates: start: 20120411, end: 20120413
  30. ERDOSTEIN [Concomitant]
     Route: 048
     Dates: start: 20120510, end: 20120517
  31. CODEINE PHOSPHATE [Concomitant]
     Route: 048
     Dates: start: 20120523, end: 20120523
  32. RAMOSETRON HYDROCHLORIDE [Concomitant]
     Route: 048
     Dates: start: 20120523, end: 20120524
  33. SODIUM CHLORIDE [Concomitant]
     Dosage: ROUTE: THR
     Dates: start: 20120510, end: 20120510
  34. VENLAFAXINE HCL [Concomitant]
     Route: 048
     Dates: start: 20120510, end: 20120517
  35. TRANEXAMIC ACID [Concomitant]
     Route: 042
     Dates: start: 20120411, end: 20120417
  36. N/S [Concomitant]
     Dosage: BG
     Route: 042
     Dates: start: 20120427, end: 20120427
  37. N/S [Concomitant]
     Route: 042
     Dates: start: 20120511, end: 20120512
  38. N/S [Concomitant]
     Route: 042
     Dates: start: 20120511, end: 20120512
  39. N/S [Concomitant]
     Route: 042
     Dates: start: 20120522, end: 20120522
  40. LEVO-CLOPERASTINE FENDIZOATE [Concomitant]
     Route: 048
     Dates: start: 20120501, end: 20120501
  41. TIANEPTINE NA [Concomitant]
     Indication: DEPRESSION
     Route: 048
     Dates: start: 20120413, end: 20120507
  42. VITIS VINIFERA EXTRACT [Concomitant]
     Route: 048
     Dates: start: 20120521, end: 20120602
  43. SODIUM CHLORIDE [Concomitant]
     Dosage: ROUTE: THR, STRENGTH: 9 G
     Dates: start: 20120524, end: 20120524
  44. RANITIDINE HCL [Concomitant]
     Indication: PROPHYLAXIS
     Route: 042
     Dates: start: 20120427, end: 20120429
  45. CARBOPLATIN [Concomitant]
     Indication: CHEMOTHERAPY
     Route: 042
     Dates: start: 20120427, end: 20120429
  46. D/W [Concomitant]
     Indication: DEHYDRATION
     Dosage: 5 %
     Route: 042
     Dates: start: 20120427, end: 20120427
  47. MAGNESIUM HYDROXIDE TAB [Concomitant]
     Route: 048
     Dates: start: 20120510, end: 20120517
  48. N/S [Concomitant]
     Dosage: BG
     Route: 042
     Dates: start: 20120421, end: 20120421
  49. N/S [Concomitant]
     Route: 042
     Dates: start: 20120427, end: 20120427
  50. N/S [Concomitant]
     Route: 042
     Dates: start: 20120522, end: 20120524
  51. CEFODIZIME DISODIUM [Concomitant]
     Indication: PROPHYLAXIS
     Route: 042
     Dates: start: 20120411, end: 20120426
  52. LEVO-CLOPERASTINE FENDIZOATE [Concomitant]
     Indication: COUGH
     Route: 048
     Dates: start: 20120411, end: 20120428
  53. FAMOTIDINE [Concomitant]
     Indication: PROPHYLAXIS
     Route: 048
     Dates: start: 20120411, end: 20120507
  54. VITIS VINIFERA EXTRACT [Concomitant]
     Indication: PROPHYLAXIS
     Route: 048
     Dates: start: 20120413, end: 20120507
  55. ETOPOSIDE [Concomitant]
     Route: 042
     Dates: start: 20120428, end: 20120428
  56. NYSTATINE GARGLE [Concomitant]
     Dosage: ROUTE: THR
     Dates: start: 20120512, end: 20120512
  57. BISACODYL [Concomitant]
     Indication: CONSTIPATION
     Dosage: ROUTE: REC
     Dates: start: 20120429, end: 20120429
  58. BENZYDAMINE [Concomitant]
     Route: 048
     Dates: start: 20120430, end: 20120430
  59. BENZYDAMINE [Concomitant]
     Route: 048
     Dates: start: 20120510, end: 20120510
  60. CHEMOTHERAPY [Concomitant]
     Dosage: UNKNOWN DOSE
     Dates: start: 20120428, end: 20120430
  61. ZINC SULFATE HEPTAHYDRATE [Concomitant]
     Indication: MINERAL SUPPLEMENTATION
     Dosage: 4.39 M
     Route: 042
     Dates: start: 20120414, end: 20120414
  62. CODEINE PHOSPHATE [Concomitant]
     Indication: COUGH
     Route: 048
     Dates: start: 20120411, end: 20120413
  63. SODIUM CHLORIDE [Concomitant]
     Indication: THERAPEUTIC PROCEDURE
     Dosage: ROUTE: THR, STRENGTH: 9 G
     Dates: start: 20120427, end: 20120427
  64. SODIUM CHLORIDE [Concomitant]
     Dosage: ROUTE: THR, STRENGTH: 9 G
     Dates: start: 20120521, end: 20120521
  65. ETOPOSIDE [Concomitant]
     Route: 042
     Dates: start: 20120522, end: 20120524
  66. NYSTATINE GARGLE [Concomitant]
     Dosage: ROUTE: THR
     Dates: start: 20120427, end: 20120427
  67. MAGNESIUM HYDROXIDE TAB [Concomitant]
     Indication: CONSTIPATION
     Route: 048
     Dates: start: 20120429, end: 20120507
  68. VENLAFAXINE HCL [Concomitant]
     Route: 048
     Dates: start: 20120521, end: 20120602
  69. LACTULOSE [Concomitant]
     Indication: CONSTIPATION
     Route: 048
     Dates: start: 20120430, end: 20120507
  70. TRANEXAMIC ACID [Concomitant]
     Route: 042
     Dates: start: 20120412, end: 20120413
  71. N/S [Concomitant]
     Indication: MEDICATION DILUTION
     Dosage: BG
     Route: 042
     Dates: start: 20120411, end: 20120413
  72. N/S [Concomitant]
     Dosage: BG
     Route: 042
     Dates: start: 20120416, end: 20120417
  73. N/S [Concomitant]
     Dosage: BG
     Route: 042
     Dates: start: 20120416, end: 20120417
  74. N/S [Concomitant]
     Dosage: BG
     Route: 042
     Dates: start: 20120425, end: 20120425
  75. N/S [Concomitant]
     Dosage: BG
     Route: 042
     Dates: start: 20120425, end: 20120425
  76. TIANEPTINE NA [Concomitant]
     Route: 048
     Dates: start: 20120510, end: 20120510
  77. RAMOSETRON HYDROCHLORIDE [Concomitant]
     Indication: PROPHYLAXIS
     Route: 042
     Dates: start: 20120427, end: 20120429
  78. ETOPOSIDE [Concomitant]
     Indication: CHEMOTHERAPY
     Route: 042
     Dates: start: 20120401, end: 20120427
  79. CARBOPLATIN [Concomitant]
     Route: 042
     Dates: start: 20120522, end: 20120522
  80. NYSTATINE GARGLE [Concomitant]
     Dosage: ROUTE: THR
     Dates: start: 20120510, end: 20120510
  81. MAGNESIUM HYDROXIDE TAB [Concomitant]
     Route: 048
     Dates: start: 20120521, end: 20120521
  82. VENLAFAXINE HCL [Concomitant]
     Indication: DEPRESSION
     Route: 048
     Dates: start: 20120429, end: 20120507
  83. BENZYDAMINE [Concomitant]
     Route: 048
     Dates: start: 20120427, end: 20120427
  84. N/S [Concomitant]
     Dosage: BG
     Route: 042
     Dates: start: 20120421, end: 20120421
  85. N/S [Concomitant]
     Dosage: BG
     Route: 042
     Dates: start: 20120427, end: 20120427
  86. N/S [Concomitant]
     Dosage: BG
     Route: 042
     Dates: start: 20120428, end: 20120428
  87. N/S [Concomitant]
     Route: 042
     Dates: start: 20120522, end: 20120522
  88. N/S [Concomitant]
     Route: 042
     Dates: start: 20120522, end: 20120522
  89. CLARITHROMYCIN [Concomitant]
     Indication: PROPHYLAXIS
     Route: 048
     Dates: start: 20120412, end: 20120426
  90. LEVO-CLOPERASTINE FENDIZOATE [Concomitant]
     Route: 048
     Dates: start: 20120521, end: 20120602
  91. ERDOSTEIN [Concomitant]
     Indication: COUGH
     Route: 048
     Dates: start: 20120412, end: 20120507
  92. ERDOSTEIN [Concomitant]
     Route: 048
     Dates: start: 20120521, end: 20120602
  93. RAMOSETRON HYDROCHLORIDE [Concomitant]
     Route: 042
     Dates: start: 20120522, end: 20120522
  94. DEXAMETHASONE SODIUM PHOSPHATE [Concomitant]
     Indication: PROPHYLAXIS
     Route: 042
     Dates: start: 20120427, end: 20120429
  95. NYSTATINE GARGLE [Concomitant]
     Indication: PROPHYLAXIS
     Dosage: ROUTE: THR
     Dates: start: 20120401, end: 20120401
  96. METHOTREXATE [Concomitant]
     Route: 048
     Dates: start: 20120427, end: 20120427
  97. BENZYDAMINE [Concomitant]
     Route: 048
     Dates: start: 20120512, end: 20120512

REACTIONS (2)
  - LUNG NEOPLASM MALIGNANT [None]
  - LEUKOPENIA [None]
